FAERS Safety Report 9424990 (Version 1)
Quarter: 2013Q3

REPORT INFORMATION
  Report Type: Spontaneous
  Country: US (occurrence: US)
  Receive Date: 20130729
  Receipt Date: 20130729
  Transmission Date: 20140515
  Serious: No
  Sender: FDA-Public Use
  Company Number: US-PFIZER INC-2013218977

PATIENT
  Age: 45 Year
  Sex: Female
  Weight: 72.56 kg

DRUGS (6)
  1. CHANTIX [Suspect]
     Indication: SMOKING CESSATION THERAPY
     Dosage: 0.5 MG, 1X/DAY
     Route: 048
     Dates: start: 2010, end: 2010
  2. CHANTIX [Suspect]
     Dosage: UNK
     Route: 048
     Dates: start: 2010
  3. NEXIUM [Concomitant]
     Indication: GASTROOESOPHAGEAL REFLUX DISEASE
     Dosage: UNK
  4. VITAMIN C [Concomitant]
     Dosage: UNK
     Route: 048
  5. VITAMIN B12 [Concomitant]
     Dosage: UNK
     Route: 048
  6. ALLEGRA [Concomitant]
     Indication: HYPERSENSITIVITY
     Dosage: UNK

REACTIONS (2)
  - Abnormal dreams [Recovered/Resolved]
  - Insomnia [Recovered/Resolved]
